FAERS Safety Report 19225218 (Version 1)
Quarter: 2021Q2

REPORT INFORMATION
  Report Type: Spontaneous
  Country: US (occurrence: US)
  Receive Date: 20210506
  Receipt Date: 20210506
  Transmission Date: 20210717
  Serious: No
  Sender: FDA-Public Use
  Company Number: US-PFIZER INC-2021198982

PATIENT
  Age: 81 Year
  Sex: Female
  Weight: 74.8 kg

DRUGS (7)
  1. FLUCONAZOLE. [Suspect]
     Active Substance: FLUCONAZOLE
     Dosage: 150 MG, 1X/DAY
  2. ACARBOSE. [Suspect]
     Active Substance: ACARBOSE
     Dosage: 25 MG, AS NEEDED (THREE TIMES A DAY AS NEEDED)
     Route: 048
  3. TYVASO [Suspect]
     Active Substance: TREPROSTINIL
     Dosage: UNK, 4X/DAY (18?54 ?G)
     Route: 055
  4. NYSTATIN. [Suspect]
     Active Substance: NYSTATIN
     Dosage: 1000 IU, 2X/DAY
  5. FLUTICASONE PROPIONATE. [Suspect]
     Active Substance: FLUTICASONE PROPIONATE
     Dosage: UNK, 2X/DAY
     Route: 045
  6. DOXYCYCLINE HYCLATE. [Suspect]
     Active Substance: DOXYCYCLINE HYCLATE
     Dosage: 100 MG, 2X/DAY
  7. TYVASO [Suspect]
     Active Substance: TREPROSTINIL
     Indication: PULMONARY ARTERIAL HYPERTENSION
     Dosage: UNK
     Route: 055
     Dates: start: 20121215

REACTIONS (2)
  - Malaise [Unknown]
  - Infection [Unknown]
